FAERS Safety Report 6871379-6 (Version None)
Quarter: 2010Q3

REPORT INFORMATION
  Report Type: 
  Country: None (occurrence: None)
  Receive Date: 20100723
  Receipt Date: 20100712
  Transmission Date: 20110219
  Serious: Yes (Hospitalization, Other)
  Sender: FDA-Public Use
  Company Number: US-PFIZER INC-2009266287

PATIENT
  Sex: Female

DRUGS (5)
  1. CHANTIX [Suspect]
     Indication: SMOKING CESSATION THERAPY
     Dosage: ONE PILL ONCE DAILY
     Route: 048
     Dates: start: 20070829, end: 20071008
  2. PROPRANOLOL [Concomitant]
     Indication: ANXIETY
     Dosage: UNK
     Dates: start: 20000101
  3. PROPRANOLOL [Concomitant]
     Indication: TREMOR
  4. WELLBUTRIN [Concomitant]
     Indication: BIPOLAR DISORDER
     Dosage: UNK
     Dates: start: 20000101, end: 20080101
  5. ZOLOFT [Concomitant]
     Indication: BIPOLAR DISORDER
     Dosage: UNK
     Dates: start: 20000101, end: 20080101

REACTIONS (9)
  - AGGRESSION [None]
  - AGITATION [None]
  - ALCOHOLISM [None]
  - DEPRESSION [None]
  - HALLUCINATION [None]
  - LOSS OF CONSCIOUSNESS [None]
  - MENTAL DISORDER [None]
  - POOR QUALITY SLEEP [None]
  - SUICIDE ATTEMPT [None]
